FAERS Safety Report 17728203 (Version 1)
Quarter: 2020Q2

REPORT INFORMATION
  Report Type: Spontaneous
  Country: MX (occurrence: MX)
  Receive Date: 20200430
  Receipt Date: 20200430
  Transmission Date: 20200714
  Serious: Yes (Hospitalization)
  Sender: FDA-Public Use
  Company Number: MX-TEVA-2020-MX-1231149

PATIENT
  Age: 29 Year
  Sex: Female

DRUGS (3)
  1. HYDROXYCHLOROQUINE [Suspect]
     Active Substance: HYDROXYCHLOROQUINE
     Indication: SYSTEMIC LUPUS ERYTHEMATOSUS
     Dosage: 200 MILLIGRAM DAILY; SCHEDULED FOR 2 MONTHS
     Route: 048
  2. MYCOPHENOLATE MOFETIL. [Suspect]
     Active Substance: MYCOPHENOLATE MOFETIL
     Indication: SYSTEMIC LUPUS ERYTHEMATOSUS
     Dosage: 2.5 GRAM DAILY; SCHEDULED FOR 2 MONTHS
     Route: 048
  3. PREDNISONE. [Suspect]
     Active Substance: PREDNISONE
     Indication: SYSTEMIC LUPUS ERYTHEMATOSUS
     Dosage: 30 MILLIGRAM DAILY; SCHEDULED FOR 2 MONTHS
     Route: 048

REACTIONS (7)
  - Brain abscess [Recovering/Resolving]
  - Pyomyositis [Recovered/Resolved]
  - Nocardiosis [Recovering/Resolving]
  - Endophthalmitis [Recovering/Resolving]
  - Liver abscess [Recovered/Resolved]
  - Muscle abscess [Recovered/Resolved]
  - Perinephric abscess [Recovered/Resolved]
